FAERS Safety Report 4355459-5 (Version None)
Quarter: 2004Q2

REPORT INFORMATION
  Report Type: 
  Country: None (occurrence: None)
  Receive Date: 20040510
  Receipt Date: 20040430
  Transmission Date: 20050107
  Serious: Yes (Hospitalization)
  Sender: FDA-Public Use
  Company Number: US-BRISTOL-MYERS SQUIBB COMPANY-12577490

PATIENT
  Sex: Male

DRUGS (1)
  1. BLENOXANE [Suspect]
     Indication: NON-HODGKIN'S LYMPHOMA

REACTIONS (2)
  - ACUTE RESPIRATORY DISTRESS SYNDROME [None]
  - COMA [None]
